FAERS Safety Report 12351767 (Version 2)
Quarter: 2016Q2

REPORT INFORMATION
  Report Type: Spontaneous
  Country: US (occurrence: US)
  Receive Date: 20160510
  Receipt Date: 20160616
  Transmission Date: 20160815
  Serious: No
  Sender: FDA-Public Use
  Company Number: US-ACTELION-A-US2016-135482

PATIENT
  Age: 60 Year
  Sex: Female

DRUGS (22)
  1. VENTAVIS [Suspect]
     Active Substance: ILOPROST
     Indication: PULMONARY ARTERIAL HYPERTENSION
     Route: 055
  2. GELATIN [Concomitant]
     Active Substance: GELATIN
  3. ASTAXANTHIN [Concomitant]
  4. ATORVASTATIN [Concomitant]
     Active Substance: ATORVASTATIN
  5. TORSEMIDE. [Concomitant]
     Active Substance: TORSEMIDE
  6. ADCIRCA [Concomitant]
     Active Substance: TADALAFIL
  7. INDOMETHACIN. [Concomitant]
     Active Substance: INDOMETHACIN
  8. GINGER. [Concomitant]
     Active Substance: GINGER
  9. UPTRAVI [Suspect]
     Active Substance: SELEXIPAG
     Indication: PULMONARY ARTERIAL HYPERTENSION
     Dosage: 1600 MCG, UNK
     Route: 048
     Dates: start: 201604
  10. AMBRISENTAN [Suspect]
     Active Substance: AMBRISENTAN
     Indication: PULMONARY ARTERIAL HYPERTENSION
     Dosage: 10 MG, QD
     Route: 065
     Dates: start: 20160215
  11. MULTIVITAMIN [Concomitant]
     Active Substance: VITAMINS
  12. VITAMIN B12 [Concomitant]
     Active Substance: CYANOCOBALAMIN
  13. ALDACTONE [Concomitant]
     Active Substance: SPIRONOLACTONE
  14. TYVASO [Concomitant]
     Active Substance: TREPROSTINIL
  15. METOPROLOL. [Concomitant]
     Active Substance: METOPROLOL
  16. ULORIC [Concomitant]
     Active Substance: FEBUXOSTAT
  17. TURMERIC [Concomitant]
     Active Substance: TURMERIC
  18. WARFARIN [Concomitant]
     Active Substance: WARFARIN
  19. OMEPRAZOLE. [Concomitant]
     Active Substance: OMEPRAZOLE
  20. LISINOPRIL. [Concomitant]
     Active Substance: LISINOPRIL
  21. SUPER B COMPLEX [Concomitant]
     Active Substance: CYANOCOBALAMIN\DEXPANTHENOL\NIACINAMIDE\PYRIDOXINE HYDROCHLORIDE\RIBOFLAVIN 5^-PHOSPHATE SODIUM\THIAMINE HYDROCHLORIDE\VITAMIN B COMPLEX
  22. SPIRULINA [Concomitant]
     Active Substance: SPIRULINA

REACTIONS (2)
  - Headache [Unknown]
  - Pain [Unknown]

NARRATIVE: CASE EVENT DATE: 20160420
